FAERS Safety Report 13531308 (Version 3)
Quarter: 2017Q2

REPORT INFORMATION
  Report Type: Spontaneous
  Country: US (occurrence: US)
  Receive Date: 20170510
  Receipt Date: 20170516
  Transmission Date: 20170830
  Serious: No
  Sender: FDA-Public Use
  Company Number: US-PFIZER INC-2017199917

PATIENT
  Age: 80 Year

DRUGS (3)
  1. LYRICA [Suspect]
     Active Substance: PREGABALIN
     Indication: NEUROPATHY PERIPHERAL
  2. LYRICA [Suspect]
     Active Substance: PREGABALIN
     Indication: POLYNEUROPATHY
     Dosage: 100 MG, 2X/DAY (ONE CAPSULE IN AM AND IN PM)
     Dates: start: 20170425
  3. LYRICA [Suspect]
     Active Substance: PREGABALIN
     Indication: MONONEURITIS

REACTIONS (1)
  - Drug hypersensitivity [Unknown]
